FAERS Safety Report 15090532 (Version 1)
Quarter: 2018Q2

REPORT INFORMATION
  Report Type: Report from Study
  Country: US (occurrence: US)
  Receive Date: 20180629
  Receipt Date: 20180629
  Transmission Date: 20180711
  Serious: Yes (Death)
  Sender: FDA-Public Use
  Company Number: US-MYLANLABS-2018M1046578

PATIENT
  Sex: Female

DRUGS (2)
  1. CARBOPLATIN. [Suspect]
     Active Substance: CARBOPLATIN
     Indication: OVARIAN CANCER RECURRENT
     Dosage: ON DAY 8, OF A 28-DAY CYCLE
     Route: 041
  2. GUADECITABINE [Suspect]
     Active Substance: GUADECITABINE
     Indication: OVARIAN CANCER RECURRENT
     Dosage: ON DAYS 1-5 OF A 28 DAY CYCLE
     Route: 058

REACTIONS (1)
  - Sepsis [Fatal]
